FAERS Safety Report 16176156 (Version 3)
Quarter: 2020Q3

REPORT INFORMATION
  Report Type: Spontaneous
  Country: US (occurrence: US)
  Receive Date: 20190409
  Receipt Date: 20200731
  Transmission Date: 20201102
  Serious: Yes (Other)
  Sender: FDA-Public Use
  Company Number: US-SA-2019SA095901

PATIENT

DRUGS (1)
  1. DUPIXENT [Suspect]
     Active Substance: DUPILUMAB
     Indication: DERMATITIS ATOPIC
     Dosage: 300 MG, QOW
     Route: 058
     Dates: start: 20180615

REACTIONS (5)
  - Staphylococcal infection [Unknown]
  - Illness [Unknown]
  - Product dose omission issue [Unknown]
  - Morning sickness [Unknown]
  - Gastrooesophageal reflux disease [Unknown]
